FAERS Safety Report 6588074-3 (Version None)
Quarter: 2010Q1

REPORT INFORMATION
  Report Type: 
  Country: None (occurrence: None)
  Receive Date: 20100218
  Receipt Date: 20100208
  Transmission Date: 20100710
  Serious: Yes (Other)
  Sender: FDA-Public Use
  Company Number: PHHY2010BR07515

PATIENT
  Sex: Female

DRUGS (4)
  1. DIOVAN AMLO [Suspect]
     Indication: HYPERTENSION
     Dosage: 160/5MG, 1 TABLET A DAY
     Route: 048
  2. DIOVAN AMLO [Suspect]
     Dosage: 320/5MG, 1 TABLET A DAY
     Route: 048
     Dates: start: 20100101
  3. COMBIRON B 12 [Concomitant]
     Indication: ANAEMIA
     Route: 065
  4. DEXA-CITONEURIN 5000 [Concomitant]
     Indication: VITAMIN SUPPLEMENTATION
     Dosage: 1 AMPOULE
     Route: 065

REACTIONS (2)
  - HEADACHE [None]
  - HYPERTENSION [None]
